FAERS Safety Report 13489934 (Version 1)
Quarter: 2017Q2

REPORT INFORMATION
  Report Type: Other
  Country: GB (occurrence: US)
  Receive Date: 20170426
  Receipt Date: 20170426
  Transmission Date: 20170830
  Serious: Yes (Other)
  Sender: FDA-Public Use
  Company Number: US-INTERNATIONAL MEDICATION SYSTEMS, LIMITED-1065915

PATIENT
  Age: 57 Year
  Sex: Male

DRUGS (1)
  1. MORPHINE [Suspect]
     Active Substance: MORPHINE
     Indication: BACK PAIN
     Route: 037

REACTIONS (3)
  - Device malfunction [Unknown]
  - Drug withdrawal syndrome [Recovering/Resolving]
  - Rebound psychosis [Recovering/Resolving]
